FAERS Safety Report 10999058 (Version 1)
Quarter: 2015Q2

REPORT INFORMATION
  Report Type: Other
  Country: GB (occurrence: GB)
  Receive Date: 20150408
  Receipt Date: 20150408
  Transmission Date: 20150821
  Serious: Yes (Hospitalization)
  Sender: FDA-Public Use
  Company Number: GB-TARO PHARMACEUTICALS U.S.A., INC-2015SUN00908

PATIENT
  Age: 76 Year
  Sex: Female
  Weight: 107 kg

DRUGS (12)
  1. PARACETAMOL [Concomitant]
     Active Substance: ACETAMINOPHEN
  2. QUETIAPINE [Concomitant]
     Active Substance: QUETIAPINE
  3. SIMVASTATIN. [Concomitant]
     Active Substance: SIMVASTATIN
  4. DIGOXIN. [Concomitant]
     Active Substance: DIGOXIN
  5. TRAVATAN [Concomitant]
     Active Substance: TRAVOPROST
  6. BRISTOL LABS FRUSEMIDE [Interacting]
     Active Substance: FUROSEMIDE
     Dosage: UNK
  7. GALANTAMINE [Concomitant]
     Active Substance: GALANTAMINE
  8. NAVISPARE [Concomitant]
  9. WARFARIN [Suspect]
     Active Substance: WARFARIN
     Indication: PRODUCT USED FOR UNKNOWN INDICATION
     Dosage: UNK
     Route: 065
  10. BRISTOL LABS FRUSEMIDE [Interacting]
     Active Substance: FUROSEMIDE
     Indication: OEDEMA
     Dosage: 80 MG, UNK
     Route: 048
     Dates: start: 20150121, end: 20150205
  11. ENALAPRIL [Concomitant]
     Active Substance: ENALAPRIL
  12. LEVOTHYROXINE [Concomitant]
     Active Substance: LEVOTHYROXINE

REACTIONS (5)
  - Pruritus generalised [Unknown]
  - Drug interaction [Unknown]
  - Rash [Recovering/Resolving]
  - International normalised ratio increased [Unknown]
  - Facial pain [Unknown]

NARRATIVE: CASE EVENT DATE: 20150123
